FAERS Safety Report 16779277 (Version 15)
Quarter: 2021Q3

REPORT INFORMATION
  Report Type: Spontaneous
  Country: US (occurrence: US)
  Receive Date: 20190906
  Receipt Date: 20210701
  Transmission Date: 20211014
  Serious: No
  Sender: FDA-Public Use
  Company Number: US-PFIZER INC-2018352733

PATIENT
  Age: 61 Year
  Sex: Female
  Weight: 64 kg

DRUGS (2)
  1. LYRICA [Suspect]
     Active Substance: PREGABALIN
     Indication: NERVE INJURY
     Dosage: 150 MG, 4X/DAY (150 MG, FOUR TIMES DAILY)
     Route: 048
     Dates: start: 2017
  2. LYRICA [Suspect]
     Active Substance: PREGABALIN
     Dosage: 150 MG, 4X/DAY (TAKE 1 CAPSULE BY MOUTH 4 TIMES A DAY)
     Route: 048

REACTIONS (5)
  - Nasopharyngitis [Unknown]
  - Spinal pain [Unknown]
  - Prescription drug used without a prescription [Unknown]
  - Sinus disorder [Unknown]
  - Pain [Unknown]

NARRATIVE: CASE EVENT DATE: 20190820
